FAERS Safety Report 9158302 (Version 1)
Quarter: 2013Q1

REPORT INFORMATION
  Report Type: Spontaneous
  Country: FR (occurrence: FR)
  Receive Date: 20130312
  Receipt Date: 20130312
  Transmission Date: 20140127
  Serious: Yes (Hospitalization, Other)
  Sender: FDA-Public Use
  Company Number: FR-BRISTOL-MYERS SQUIBB COMPANY-17438698

PATIENT
  Age: 85 Year
  Sex: Female

DRUGS (14)
  1. COUMADINE [Suspect]
     Indication: PULMONARY EMBOLISM
     Dosage: INRTRPD UNITLL:26JAN2013
     Route: 048
     Dates: start: 20130103
  2. CALCIPARINE [Suspect]
  3. HYDROCORTISONE [Suspect]
     Dosage: IN MORNING
  4. PREVISCAN [Suspect]
     Route: 048
     Dates: start: 2011, end: 20130102
  5. ALLOPURINOL [Suspect]
     Indication: HYPERURICAEMIA
     Route: 048
     Dates: start: 20130107, end: 20130128
  6. PREDNISONE [Suspect]
     Indication: TEMPORAL ARTERITIS
     Route: 048
     Dates: start: 20130108
  7. CORDARONE [Suspect]
  8. VALSARTAN [Concomitant]
     Dosage: 1 TAB ON MORN
  9. AMLODIPINE [Concomitant]
     Dosage: 1 TABLET ON MORNING
  10. ESOMEPRAZOLE [Concomitant]
     Dosage: 1 TAB IN EVENING
  11. NATECAL [Concomitant]
     Dosage: 1 TABLET ON MORNING AND ON EVENING
  12. SIMVASTATIN [Concomitant]
     Dosage: 1 TABLET ON EVENING
  13. FERROUS SULFATE [Concomitant]
  14. FOSAMAX [Concomitant]
     Dates: end: 20130108

REACTIONS (12)
  - International normalised ratio increased [Recovered/Resolved]
  - Melaena [Recovered/Resolved]
  - Haematoma [Recovered/Resolved]
  - Hyponatraemia [Unknown]
  - Hyperkalaemia [Unknown]
  - Hiatus hernia [None]
  - Gastrointestinal ulcer [None]
  - Iron deficiency anaemia [None]
  - Nephrogenic anaemia [None]
  - Palpitations [None]
  - Atrial fibrillation [None]
  - Chondrocalcinosis [None]
